FAERS Safety Report 15547965 (Version 3)
Quarter: 2018Q4

REPORT INFORMATION
  Report Type: Spontaneous
  Country: IT (occurrence: IT)
  Receive Date: 20181024
  Receipt Date: 20181205
  Transmission Date: 20190205
  Serious: Yes (Other)
  Sender: FDA-Public Use
  Company Number: PHHY2018IT135895

PATIENT
  Age: 61 Year
  Sex: Male

DRUGS (3)
  1. GILENYA [Suspect]
     Active Substance: FINGOLIMOD HYDROCHLORIDE
     Indication: MULTIPLE SCLEROSIS
     Dosage: 0.5 MG, QD
     Route: 065
  2. OLANZAPINE. [Concomitant]
     Active Substance: OLANZAPINE
     Indication: AFFECTIVE DISORDER
     Route: 065
  3. DAPAKAN [Concomitant]
     Indication: AFFECTIVE DISORDER
     Route: 065

REACTIONS (1)
  - Thymoma [Recovering/Resolving]

NARRATIVE: CASE EVENT DATE: 20180802
